FAERS Safety Report 18392125 (Version 1)
Quarter: 2020Q4

REPORT INFORMATION
  Report Type: Spontaneous
  Country: US (occurrence: US)
  Receive Date: 20201016
  Receipt Date: 20201016
  Transmission Date: 20210114
  Serious: Yes (Disabling)
  Sender: FDA-Public Use
  Company Number: None

PATIENT
  Age: 56 Year
  Sex: Male
  Weight: 87.75 kg

DRUGS (1)
  1. KRATOM MAENGA DA [Suspect]
     Active Substance: HERBALS\MITRAGYNINE

REACTIONS (1)
  - Drug dependence [None]

NARRATIVE: CASE EVENT DATE: 20201010
